FAERS Safety Report 12988306 (Version 2)
Quarter: 2016Q4

REPORT INFORMATION
  Report Type: Spontaneous
  Country: FR (occurrence: FR)
  Receive Date: 20161130
  Receipt Date: 20161230
  Transmission Date: 20170207
  Serious: Yes (Life-Threatening)
  Sender: FDA-Public Use
  Company Number: FR-SA-2016SA215115

PATIENT
  Age: 78 Year
  Sex: Female

DRUGS (15)
  1. RIFADINE [Suspect]
     Active Substance: RIFAMPIN
     Indication: DEVICE RELATED INFECTION
     Route: 042
     Dates: start: 20160918, end: 20161016
  2. NEBIVOLOL. [Concomitant]
     Active Substance: NEBIVOLOL
  3. GENTAMICIN. [Suspect]
     Active Substance: GENTAMICIN
     Indication: DEVICE RELATED INFECTION
     Route: 042
     Dates: start: 20161016, end: 20161016
  4. FORTUM [Suspect]
     Active Substance: CEFTAZIDIME
     Indication: DEVICE RELATED INFECTION
     Route: 042
     Dates: start: 20161016, end: 20161016
  5. LASILIX [Concomitant]
     Active Substance: FUROSEMIDE
  6. TRAMADOL. [Concomitant]
     Active Substance: TRAMADOL
  7. CORDARONE [Concomitant]
     Active Substance: AMIODARONE HYDROCHLORIDE
     Dosage: 200 MG
  8. PARACETAMOL [Concomitant]
     Active Substance: ACETAMINOPHEN
  9. ALLOPURINOL. [Concomitant]
     Active Substance: ALLOPURINOL
  10. IOMERON [Suspect]
     Active Substance: IOMEPROL
     Route: 042
     Dates: start: 20161020, end: 20161020
  11. LEVOTHYROX [Concomitant]
     Active Substance: LEVOTHYROXINE
  12. SIMVASTATIN. [Concomitant]
     Active Substance: SIMVASTATIN
  13. ELIQUIS [Concomitant]
     Active Substance: APIXABAN
  14. VANCOMYCIN [Suspect]
     Active Substance: VANCOMYCIN
     Indication: DEVICE RELATED INFECTION
     Route: 042
     Dates: start: 20160918, end: 20161016
  15. LASILIX RETARD [Concomitant]
     Active Substance: FUROSEMIDE

REACTIONS (2)
  - Drug reaction with eosinophilia and systemic symptoms [Recovering/Resolving]
  - Encephalitis [Not Recovered/Not Resolved]

NARRATIVE: CASE EVENT DATE: 20161016
